FAERS Safety Report 17375866 (Version 1)
Quarter: 2020Q1

REPORT INFORMATION
  Report Type: Spontaneous
  Country: US (occurrence: US)
  Receive Date: 20200206
  Receipt Date: 20200206
  Transmission Date: 20200409
  Serious: Yes (Life-Threatening, Hospitalization, Other)
  Sender: FDA-Public Use
  Company Number: US-SCIEGEN PHARMACEUTICALS INC-2020SCILIT00021

PATIENT
  Age: 72 Year
  Sex: Male

DRUGS (6)
  1. PROPAFENONE. [Suspect]
     Active Substance: PROPAFENONE
  2. FLOMAX [Suspect]
     Active Substance: TAMSULOSIN HYDROCHLORIDE
  3. XARELTO [Suspect]
     Active Substance: RIVAROXABAN
  4. METFORMIN HYDROCHLORIDETABLETS [Suspect]
     Active Substance: METFORMIN HYDROCHLORIDE
  5. SYNTHROID [Suspect]
     Active Substance: LEVOTHYROXINE SODIUM
  6. RAMIPRIL. [Suspect]
     Active Substance: RAMIPRIL

REACTIONS (8)
  - Hypertension [Unknown]
  - Electrocardiogram QRS complex prolonged [Unknown]
  - Mental status changes [Unknown]
  - Generalised tonic-clonic seizure [Recovered/Resolved]
  - Ventricular tachycardia [Recovered/Resolved]
  - Accidental overdose [Unknown]
  - Bradycardia [Unknown]
  - Atrioventricular block [Unknown]
